FAERS Safety Report 4281242-5 (Version None)
Quarter: 2004Q1

REPORT INFORMATION
  Report Type: 
  Country: None (occurrence: None)
  Receive Date: 20040129
  Receipt Date: 20030214
  Transmission Date: 20041129
  Serious: Yes (Hospitalization)
  Sender: FDA-Public Use
  Company Number: PHNR2003AU00558

PATIENT
  Age: 26 Year
  Sex: Male

DRUGS (1)
  1. CLOZARIL [Suspect]
     Indication: SCHIZOPHRENIA
     Dosage: 50MG MANE, 250MG NOCTE
     Route: 048
     Dates: start: 20030131, end: 20030214

REACTIONS (3)
  - INFLUENZA LIKE ILLNESS [None]
  - SINUS TACHYCARDIA [None]
  - TROPONIN INCREASED [None]
